FAERS Safety Report 6139601-1 (Version None)
Quarter: 2009Q1

REPORT INFORMATION
  Report Type: 
  Country: None (occurrence: None)
  Receive Date: 20090330
  Receipt Date: 20080609
  Transmission Date: 20090719
  Serious: Yes (Other)
  Sender: FDA-Public Use
  Company Number: 162015USA

PATIENT
  Age: 63 Year
  Sex: Female

DRUGS (2)
  1. TAMOXIFEN CITRATE [Suspect]
     Indication: BREAST CANCER
     Dosage: 20 MG (20 MG, 1 IN 1 D), ORAL
     Route: 048
     Dates: start: 20070403, end: 20070830
  2. DIURETICS [Concomitant]

REACTIONS (2)
  - CEREBROVASCULAR ACCIDENT [None]
  - VISUAL IMPAIRMENT [None]
